FAERS Safety Report 5330024-1 (Version None)
Quarter: 2007Q2

REPORT INFORMATION
  Report Type: 
  Country: None (occurrence: None)
  Receive Date: 20070521
  Receipt Date: 20070511
  Transmission Date: 20071010
  Serious: Yes (Other)
  Sender: FDA-Public Use
  Company Number: D0052831A

PATIENT
  Age: 62 Year
  Sex: Male

DRUGS (8)
  1. AVANDIA [Suspect]
     Dosage: 4MG PER DAY
     Route: 048
     Dates: start: 20011123, end: 20060627
  2. METFORMIN HCL [Concomitant]
     Dosage: 850MG TWICE PER DAY
     Route: 048
     Dates: start: 20010831
  3. REPAGLINIDE [Concomitant]
     Dosage: 6MG PER DAY
     Route: 048
     Dates: start: 20020524
  4. ATORVASTATIN CALCIUM [Concomitant]
     Dosage: 10MG PER DAY
     Route: 048
     Dates: start: 20010831
  5. ISMN [Concomitant]
     Dosage: 40MG PER DAY
     Route: 048
     Dates: start: 20010831
  6. METOPROLOL SUCCINATE [Concomitant]
     Dosage: 100MG PER DAY
     Route: 048
     Dates: start: 20010831
  7. ASPIRIN [Concomitant]
     Dosage: 100MG PER DAY
     Route: 048
     Dates: start: 20010831
  8. PERINDOPRIL [Concomitant]
     Dosage: 4MG PER DAY
     Route: 048
     Dates: start: 20020528

REACTIONS (1)
  - FOOT FRACTURE [None]
